FAERS Safety Report 9133521 (Version 1)
Quarter: 2013Q1

REPORT INFORMATION
  Report Type: Spontaneous
  Country: US (occurrence: US)
  Receive Date: 20130116
  Receipt Date: 20130116
  Transmission Date: 20140127
  Serious: Yes (Death)
  Sender: FDA-Public Use
  Company Number: US-B.I. PHARMACEUTICALS,INC./RIDGEFIELD-2013-BI-00490BP

PATIENT
  Age: 51 Year
  Sex: Male

DRUGS (1)
  1. SPIRIVA [Suspect]
     Route: 065

REACTIONS (1)
  - Death [Fatal]
